FAERS Safety Report 18829227 (Version 1)
Quarter: 2021Q1

REPORT INFORMATION
  Report Type: Spontaneous
  Country: US (occurrence: US)
  Receive Date: 20210201
  Receipt Date: 20210201
  Transmission Date: 20210419
  Serious: Yes (Other)
  Sender: FDA-Public Use
  Company Number: US-ABBVIE-20K-163-3571704-00

PATIENT
  Age: 60 Year
  Sex: Female
  Weight: 52.21 kg

DRUGS (5)
  1. COLESTIPOL [Concomitant]
     Active Substance: COLESTIPOL
     Indication: CROHN^S DISEASE
  2. AMLODIPINE [Concomitant]
     Active Substance: AMLODIPINE BESYLATE
     Indication: HYPERTENSION
  3. METOPROLOL. [Concomitant]
     Active Substance: METOPROLOL
     Indication: HYPERTENSION
  4. HUMIRA [Suspect]
     Active Substance: ADALIMUMAB
     Indication: CROHN^S DISEASE
     Route: 058
     Dates: start: 2010
  5. HYDRALAZINE [Concomitant]
     Active Substance: HYDRALAZINE HYDROCHLORIDE
     Indication: HYPERTENSION

REACTIONS (4)
  - Wrong technique in product usage process [Not Recovered/Not Resolved]
  - Nephrolithiasis [Recovered/Resolved]
  - Incorrect dose administered [Not Recovered/Not Resolved]
  - Injection site haemorrhage [Not Recovered/Not Resolved]

NARRATIVE: CASE EVENT DATE: 202005
